FAERS Safety Report 10306327 (Version 1)
Quarter: 2014Q3

REPORT INFORMATION
  Report Type: Spontaneous
  Country: HK (occurrence: HK)
  Receive Date: 20140715
  Receipt Date: 20140715
  Transmission Date: 20150326
  Serious: Yes (Other)
  Sender: FDA-Public Use
  Company Number: HK-WATSON-2014-15343

PATIENT
  Age: 68 Year
  Sex: Male

DRUGS (1)
  1. GENTAMICIN [Suspect]
     Active Substance: GENTAMICIN
     Indication: ANTIBIOTIC PROPHYLAXIS
     Dosage: UNK
     Route: 061
     Dates: start: 200705

REACTIONS (4)
  - Staphylococcal infection [Unknown]
  - Drug ineffective [Unknown]
  - Pathogen resistance [Unknown]
  - Mycobacterium chelonae infection [Recovered/Resolved]

NARRATIVE: CASE EVENT DATE: 20070921
